FAERS Safety Report 11568618 (Version 4)
Quarter: 2015Q4

REPORT INFORMATION
  Report Type: Report from Study
  Country: BR (occurrence: BR)
  Receive Date: 20150929
  Receipt Date: 20151204
  Transmission Date: 20160304
  Serious: Yes (Other)
  Sender: FDA-Public Use
  Company Number: PHHY2015BR115495

PATIENT
  Sex: Female
  Weight: 33 kg

DRUGS (3)
  1. FRONTAL [Concomitant]
     Active Substance: ALPRAZOLAM
     Indication: DEPRESSION
     Dosage: 0.5 MG, BID
     Route: 048
     Dates: start: 1992
  2. ACLASTA [Suspect]
     Active Substance: ZOLEDRONIC ACID
     Indication: OSTEOPOROSIS
     Dosage: 5 MG, Q12MO
     Route: 042
     Dates: start: 2007
  3. DIMETICONA [Concomitant]
     Indication: FLATULENCE
     Dosage: 40 MG, QD (STARTED MANY YEARS AGO)
     Route: 048

REACTIONS (6)
  - Visual acuity reduced [Not Recovered/Not Resolved]
  - Retinal degeneration [Not Recovered/Not Resolved]
  - Cataract [Recovered/Resolved]
  - Haemorrhoids [Recovering/Resolving]
  - Cataract [Not Recovered/Not Resolved]
  - Vision blurred [Not Recovered/Not Resolved]
